FAERS Safety Report 8190753-1 (Version None)
Quarter: 2012Q1

REPORT INFORMATION
  Report Type: 
  Country: None (occurrence: None)
  Receive Date: 20120307
  Receipt Date: 20120227
  Transmission Date: 20120608
  Serious: Yes (Hospitalization, Other)
  Sender: FDA-Public Use
  Company Number: US-BAYER-2011-040167

PATIENT
  Age: 22 Year
  Sex: Female
  Weight: 74.83 kg

DRUGS (4)
  1. NAPROXEN SODIUM W/PSEUDOEPHEDRINE HCL [Concomitant]
     Dosage: 550 MG, UNK
     Dates: start: 20060206
  2. YASMIN [Suspect]
     Indication: CONTRACEPTION
     Dosage: UNK
     Dates: start: 20060328, end: 20060518
  3. TRIAMCINOLONE [Concomitant]
     Dosage: 0.1 %, UNK
     Route: 061
     Dates: start: 20060328
  4. PROPOXYPHENE HYDROCHLORIDE [Concomitant]
     Dosage: UNK
     Route: 048
     Dates: start: 20060206

REACTIONS (13)
  - ABORTION INDUCED [None]
  - INJURY [None]
  - CONVULSION [None]
  - DEEP VEIN THROMBOSIS [None]
  - ISCHAEMIC STROKE [None]
  - UNRESPONSIVE TO STIMULI [None]
  - HYPOAESTHESIA [None]
  - PAIN [None]
  - AMNESIA [None]
  - MUSCULAR WEAKNESS [None]
  - ANXIETY [None]
  - MUSCULOSKELETAL PAIN [None]
  - EMOTIONAL DISTRESS [None]
